FAERS Safety Report 6898427-1 (Version None)
Quarter: 2010Q3

REPORT INFORMATION
  Report Type: 
  Country: None (occurrence: None)
  Receive Date: 20100729
  Receipt Date: 20100715
  Transmission Date: 20110219
  Serious: Yes (Other)
  Sender: FDA-Public Use
  Company Number: IDA-00382

PATIENT
  Age: 28 Year
  Sex: Male

DRUGS (5)
  1. SEROQUEL [Suspect]
     Indication: BIPOLAR I DISORDER
     Dosage: DAILY  ORAL TABLET
     Route: 048
  2. PROPRANOLOL [Suspect]
     Dosage: DAILY
  3. LAMOTRIGINE [Suspect]
     Dosage: DAILY
  4. (METFORMIN) [Suspect]
     Dosage: DAILY
  5. KLONOPIN [Suspect]
     Dosage: DAILY

REACTIONS (10)
  - DRUG DOSE OMISSION [None]
  - ECONOMIC PROBLEM [None]
  - INTENTIONAL SELF-INJURY [None]
  - LOSS OF EMPLOYMENT [None]
  - MANIA [None]
  - MENTAL DISORDER [None]
  - SUICIDAL BEHAVIOUR [None]
  - SUICIDAL IDEATION [None]
  - TENSION [None]
  - THERMAL BURN [None]
